FAERS Safety Report 10581668 (Version 1)
Quarter: 2014Q4

REPORT INFORMATION
  Report Type: Spontaneous
  Country: NL (occurrence: NL)
  Receive Date: 20141113
  Receipt Date: 20141113
  Transmission Date: 20150529
  Serious: Yes (Other)
  Sender: FDA-Public Use
  Company Number: NL-009507513-1411NLD000860

PATIENT
  Age: 76 Year
  Sex: Female

DRUGS (2)
  1. EZETROL [Suspect]
     Active Substance: EZETIMIBE
     Dosage: UNK
     Route: 048
     Dates: start: 2006, end: 2012
  2. EZETROL [Suspect]
     Active Substance: EZETIMIBE
     Dosage: UNK
     Route: 048
     Dates: start: 201408

REACTIONS (9)
  - Rash pruritic [Unknown]
  - Skin exfoliation [Unknown]
  - Surgery [Unknown]
  - Pigmentation disorder [Unknown]
  - Myalgia [Unknown]
  - Fatigue [Unknown]
  - Adverse event [Unknown]
  - Rash macular [Unknown]
  - Urticaria [Unknown]

NARRATIVE: CASE EVENT DATE: 2014
